FAERS Safety Report 8226217-6 (Version None)
Quarter: 2012Q1

REPORT INFORMATION
  Report Type: 
  Country: None (occurrence: None)
  Receive Date: 20120307
  Receipt Date: 20100818
  Transmission Date: 20120608
  Serious: No
  Sender: FDA-Public Use
  Company Number: PHHY2010US54893

PATIENT
  Age: 53 Year
  Sex: Male

DRUGS (5)
  1. FLOMAX [Concomitant]
  2. NORVASC [Concomitant]
  3. AFINITOR [Suspect]
     Indication: RENAL CELL CARCINOMA
     Dosage: ALT 05 MG AND 10 MG DAILY, ORAL
     Route: 048
     Dates: start: 20091201
  4. METOPROLOL TARTRATE [Concomitant]
  5. AVASTIN [Concomitant]

REACTIONS (1)
  - STOMATITIS [None]
